FAERS Safety Report 5441802-2 (Version None)
Quarter: 2007Q3

REPORT INFORMATION
  Report Type: 
  Country: None (occurrence: None)
  Receive Date: 20070830
  Receipt Date: 20070830
  Transmission Date: 20080115
  Serious: No
  Sender: FDA-Public Use
  Company Number: None

PATIENT
  Age: 19 Year
  Sex: Male
  Weight: 83 kg

DRUGS (1)
  1. EPLERENONE TABLET [Suspect]
     Indication: CARDIAC FAILURE CONGESTIVE
     Dosage: 50 MG DAILY ENTERALLLY

REACTIONS (1)
  - RASH [None]
